FAERS Safety Report 12667322 (Version 1)
Quarter: 2016Q3

REPORT INFORMATION
  Report Type: Spontaneous
  Country: CA (occurrence: CA)
  Receive Date: 20160819
  Receipt Date: 20160819
  Transmission Date: 20161109
  Serious: Yes (Other)
  Sender: FDA-Public Use
  Company Number: CA-TAKEDA-2016TUS014381

PATIENT
  Age: 30 Year
  Sex: Male

DRUGS (3)
  1. DEXILANT [Suspect]
     Active Substance: DEXLANSOPRAZOLE
     Indication: DYSPEPSIA
     Dosage: 60 MG, UNK
     Route: 065
     Dates: start: 20160615
  2. PREDNISONE. [Concomitant]
     Active Substance: PREDNISONE
     Dosage: UNK
     Dates: start: 20160610
  3. MEZAVANT [Concomitant]
     Active Substance: MESALAMINE
     Dosage: 5 G, QD
     Dates: start: 20160615

REACTIONS (1)
  - Colitis ulcerative [Unknown]
